FAERS Safety Report 19650442 (Version 1)
Quarter: 2021Q3

REPORT INFORMATION
  Report Type: Spontaneous
  Country: US (occurrence: US)
  Receive Date: 20210802
  Receipt Date: 20210802
  Transmission Date: 20211014
  Serious: No
  Sender: FDA-Public Use
  Company Number: US-GALDERMA-US2021013295

PATIENT

DRUGS (6)
  1. SOOLANTRA [Suspect]
     Active Substance: IVERMECTIN
     Indication: ROSACEA
     Dosage: 1 DOSAGE FORM, QD, ONCE A DAY AT BEDTIME
     Route: 061
     Dates: start: 20210510
  2. KETOCONAZOLE. [Concomitant]
     Active Substance: KETOCONAZOLE
     Indication: SKIN EXFOLIATION
  3. KETOCONAZOLE. [Concomitant]
     Active Substance: KETOCONAZOLE
     Indication: FEELING HOT
  4. KETOCONAZOLE. [Concomitant]
     Active Substance: KETOCONAZOLE
     Indication: DRY SKIN
     Dosage: UNK
     Route: 061
     Dates: start: 201909
  5. CERAVE FACIAL FOAMING CLEANSER [Concomitant]
     Indication: THERAPEUTIC SKIN CARE TOPICAL
     Route: 061
  6. LOREAL PARIS MAKEUP MAGIC SKIN BEAUTIFER BB CREAM TINTED MOISTURIZER [Concomitant]
     Indication: ERYTHEMA
     Route: 061

REACTIONS (1)
  - Drug ineffective [Unknown]
